FAERS Safety Report 23300619 (Version 1)
Quarter: 2023Q4

REPORT INFORMATION
  Report Type: Spontaneous
  Country: CA (occurrence: CA)
  Receive Date: 20231215
  Receipt Date: 20231215
  Transmission Date: 20240109
  Serious: Yes (Hospitalization, Other)
  Sender: FDA-Public Use
  Company Number: None

PATIENT
  Age: 42 Year
  Sex: Female

DRUGS (1)
  1. METHOTREXATE SODIUM [Suspect]
     Active Substance: METHOTREXATE SODIUM
     Indication: Systemic lupus erythematosus
     Route: 065

REACTIONS (6)
  - Ascites [Unknown]
  - Condition aggravated [Unknown]
  - Lupus nephritis [Unknown]
  - Off label use [Unknown]
  - Pancytopenia [Unknown]
  - Pericarditis [Unknown]
